FAERS Safety Report 5669138-5 (Version None)
Quarter: 2008Q1

REPORT INFORMATION
  Report Type: 
  Country: None (occurrence: None)
  Receive Date: 20080312
  Receipt Date: 20080312
  Transmission Date: 20080703
  Serious: Yes (Other)
  Sender: FDA-Public Use
  Company Number: None

PATIENT
  Age: 85 Year
  Sex: Female
  Weight: 52.3 kg

DRUGS (12)
  1. CLINDAMYCIN HCL [Suspect]
     Indication: CELLULITIS
     Dosage: CLINDAMYCIN 300 MG Q6H PO
     Route: 048
  2. WARFARIN SODIUM [Suspect]
     Indication: DEEP VEIN THROMBOSIS
     Dosage: WARFARIN 2 MG DAILY PO
     Route: 048
  3. WARFARIN SODIUM [Suspect]
     Indication: PULMONARY EMBOLISM
     Dosage: WARFARIN 2 MG DAILY PO
     Route: 048
  4. DIPHENHYDRAMINE HCL [Concomitant]
  5. CEFAZOLIN [Concomitant]
  6. VANCOMYCIN [Concomitant]
  7. DONEPEZIL HCL [Concomitant]
  8. FUROSEMIDE [Concomitant]
  9. LEVOTHYROXINE SODIUM [Concomitant]
  10. PAROXETINE HCL [Concomitant]
  11. POTASSIUM CHLORIDE [Concomitant]
  12. VERAPAMIL [Concomitant]

REACTIONS (4)
  - CELLULITIS [None]
  - INTERNATIONAL NORMALISED RATIO INCREASED [None]
  - PURPURA [None]
  - RECTAL HAEMORRHAGE [None]
